FAERS Safety Report 6046364-7 (Version None)
Quarter: 2009Q1

REPORT INFORMATION
  Report Type: 
  Country: None (occurrence: None)
  Receive Date: 20090121
  Receipt Date: 20090121
  Transmission Date: 20090719
  Serious: Yes (Death)
  Sender: FDA-Public Use
  Company Number: None

PATIENT
  Sex: Female

DRUGS (6)
  1. REVLIMID [Suspect]
     Indication: MYELODYSPLASTIC SYNDROME
     Dosage: 10 MG DAILY ORAL
     Route: 048
     Dates: start: 20081226, end: 20090117
  2. FLUOXETINE HCL [Concomitant]
  3. HYDROXYUREA [Concomitant]
  4. ALENDRONATE SODIUM [Concomitant]
  5. LORAZEPAM [Concomitant]
  6. OMEPRAZOLE [Concomitant]

REACTIONS (1)
  - PULMONARY OEDEMA [None]
